FAERS Safety Report 6108674-4 (Version None)
Quarter: 2009Q1

REPORT INFORMATION
  Report Type: 
  Country: None (occurrence: None)
  Receive Date: 20090305
  Receipt Date: 20080225
  Transmission Date: 20090719
  Serious: Yes (Death, Hospitalization, Other)
  Sender: FDA-Public Use
  Company Number: 20090002USST

PATIENT
  Age: 32 Year
  Sex: Male

DRUGS (7)
  1. NATULAN (PROCARBAZINE HYDROCHLORIDE) CAPSULES [Suspect]
     Indication: HODGKIN'S DISEASE
     Dosage: 100 MG/M2,
     Dates: start: 20090120, end: 20090126
  2. CYCLOPHOSPHAMIDE [Concomitant]
  3. VINCRISTINE [Concomitant]
  4. STOPOPHOS [Concomitant]
  5. DOXORUBICIN HCL [Concomitant]
  6. BLEOMYCIN SULFATE [Concomitant]
  7. PREDNISONE [Concomitant]

REACTIONS (2)
  - PNEUMONIA PNEUMOCOCCAL [None]
  - SEPTIC SHOCK [None]
